FAERS Safety Report 8585661 (Version 14)
Quarter: 2015Q2

REPORT INFORMATION
  Report Type: Spontaneous
  Country: US (occurrence: US)
  Receive Date: 20120530
  Receipt Date: 20150402
  Transmission Date: 20150821
  Serious: Yes (Hospitalization, Other)
  Sender: FDA-Public Use
  Company Number: US-GLAXOSMITHKLINE-A0964384A

PATIENT
  Age: 33 Year
  Sex: Female
  Weight: 64.9 kg

DRUGS (15)
  1. FLOLAN [Suspect]
     Active Substance: EPOPROSTENOL SODIUM
     Dosage: UNK
  2. FLOLAN [Suspect]
     Active Substance: EPOPROSTENOL SODIUM
     Dosage: 20 NG/KG/MIN CONTINUOUS, CONCENTRATION: 30,000 NG/ML, PUMP RATE:67 ML/DAY,VIAL STRENGTH:1.5MG
     Route: 042
     Dates: start: 20120201, end: 201503
  3. FLOLAN [Suspect]
     Active Substance: EPOPROSTENOL SODIUM
     Dosage: 20 NG/KG/MIN CONTINUOUS, CONCENTRATION: 30,000 NG/ML, PUMP RATE:67 ML/DAY,VIAL STRENGTH:1.5MG
     Route: 042
     Dates: start: 20120201
  4. LETAIRIS [Suspect]
     Active Substance: AMBRISENTAN
     Indication: PRODUCT USED FOR UNKNOWN INDICATION
  5. FLOLAN [Suspect]
     Active Substance: EPOPROSTENOL SODIUM
     Dosage: UNK
     Dates: start: 20120125
  6. FLOLAN [Suspect]
     Active Substance: EPOPROSTENOL SODIUM
     Dosage: UNK
     Dates: start: 20120125
  7. FLOLAN [Suspect]
     Active Substance: EPOPROSTENOL SODIUM
     Dosage: UNK
  8. FLOLAN [Suspect]
     Active Substance: EPOPROSTENOL SODIUM
     Dosage: 20 NG/KG/MIN CONTINUOUS; CONCENTRATION: 30,000 NG/ML; PUMP RATE:67 ML/DAY, VIAL STRENGTH:1.5MG
     Route: 042
     Dates: start: 20140217
  9. OPSUMIT [Suspect]
     Active Substance: MACITENTAN
     Indication: PRODUCT USED FOR UNKNOWN INDICATION
  10. ADCIRCA [Concomitant]
     Active Substance: TADALAFIL
  11. FLOLAN [Suspect]
     Active Substance: EPOPROSTENOL SODIUM
     Indication: PULMONARY ARTERIAL HYPERTENSION
     Dosage: 12 NG/KG/MIN20 NG/KG/MINPUMP RATE 67 ML/DAY1.5 MG VIALDOSE: 20 NG/KG/MIN, CONC: 30,000 NG/ML, V[...]
     Route: 042
     Dates: start: 20120125
  12. FLOLAN [Suspect]
     Active Substance: EPOPROSTENOL SODIUM
     Indication: COR PULMONALE CHRONIC
     Dosage: UNK
     Dates: start: 20120125
  13. FLOLAN [Suspect]
     Active Substance: EPOPROSTENOL SODIUM
     Dosage: UNK
     Dates: start: 20120125
  14. FLOLAN [Suspect]
     Active Substance: EPOPROSTENOL SODIUM
     Dosage: UNK
  15. LASIX [Concomitant]
     Active Substance: FUROSEMIDE
     Dosage: 40 MG, QD
     Route: 048

REACTIONS (16)
  - Hospitalisation [Unknown]
  - Pain in jaw [Not Recovered/Not Resolved]
  - Liver disorder [Unknown]
  - Device related infection [Unknown]
  - Medical device complication [Unknown]
  - Swelling face [Unknown]
  - Catheter placement [Unknown]
  - Liver transplant [Unknown]
  - Therapeutic procedure [Unknown]
  - Central venous catheterisation [Unknown]
  - Diarrhoea [Not Recovered/Not Resolved]
  - Headache [Unknown]
  - Transfusion [Unknown]
  - Device dislocation [Unknown]
  - Device infusion issue [Unknown]
  - Transplant [Unknown]

NARRATIVE: CASE EVENT DATE: 20120201
